FAERS Safety Report 8098181-4 (Version None)
Quarter: 2012Q1

REPORT INFORMATION
  Report Type: 
  Country: None (occurrence: None)
  Receive Date: 20120128
  Receipt Date: 20110809
  Transmission Date: 20120608
  Serious: No
  Sender: FDA-Public Use
  Company Number: US-ABBOTT-11P-163-0845100-00

PATIENT
  Age: 46 Year
  Sex: Female

DRUGS (3)
  1. LAMICTAL [Concomitant]
     Indication: PRODUCT USED FOR UNKNOWN INDICATION
     Dosage: ONCE A DAY
  2. PREDNISONE [Concomitant]
     Indication: PRODUCT USED FOR UNKNOWN INDICATION
     Dosage: ONCE A DAY
  3. HUMIRA [Suspect]
     Indication: RHEUMATOID ARTHRITIS
     Dates: start: 20110515

REACTIONS (7)
  - RHEUMATOID ARTHRITIS [None]
  - FATIGUE [None]
  - PSORIATIC ARTHROPATHY [None]
  - NEUROPATHY PERIPHERAL [None]
  - HEADACHE [None]
  - FALL [None]
  - MUSCULAR WEAKNESS [None]
